FAERS Safety Report 11662446 (Version 3)
Quarter: 2015Q4

REPORT INFORMATION
  Report Type: Spontaneous
  Country: LT (occurrence: LT)
  Receive Date: 20151027
  Receipt Date: 20151203
  Transmission Date: 20160304
  Serious: Yes (Other)
  Sender: FDA-Public Use
  Company Number: LT-009507513-1510LTU007668

PATIENT

DRUGS (14)
  1. INDINAVIR SULFATE [Suspect]
     Active Substance: INDINAVIR SULFATE
     Indication: HIV INFECTION
     Dosage: UNK
     Route: 065
  2. ETRAVIRINE [Concomitant]
     Active Substance: ETRAVIRINE
  3. NEVIRAPINE. [Concomitant]
     Active Substance: NEVIRAPINE
  4. RITONAVIR. [Concomitant]
     Active Substance: RITONAVIR
  5. EFAVIRENZ [Suspect]
     Active Substance: EFAVIRENZ
     Indication: HIV INFECTION
     Dosage: UNK
     Route: 065
  6. LAMIVUDINE. [Concomitant]
     Active Substance: LAMIVUDINE
  7. DIDANOSINE. [Concomitant]
     Active Substance: DIDANOSINE
  8. ATAZANAVIR [Concomitant]
     Active Substance: ATAZANAVIR
  9. RILPIVIRINE [Concomitant]
     Active Substance: RILPIVIRINE
  10. ABACAVIR. [Concomitant]
     Active Substance: ABACAVIR
  11. LOPINAVIR (+) RITONAVIR [Concomitant]
     Active Substance: LOPINAVIR\RITONAVIR
  12. EMTRICITABINE [Concomitant]
     Active Substance: EMTRICITABINE
  13. FOSAMPRENAVIR CALCIUM (+) RITONAVIR [Concomitant]
     Active Substance: FOSAMPRENAVIR\RITONAVIR
  14. NELFINAVIR [Concomitant]
     Active Substance: NELFINAVIR

REACTIONS (1)
  - Drug resistance [Unknown]
